FAERS Safety Report 6845969-0 (Version None)
Quarter: 2010Q3

REPORT INFORMATION
  Report Type: 
  Country: None (occurrence: None)
  Receive Date: 20100715
  Receipt Date: 20070831
  Transmission Date: 20110219
  Serious: Yes (Other)
  Sender: FDA-Public Use
  Company Number: US-PFIZER INC-2007074641

PATIENT
  Sex: Male
  Weight: 72.6 kg

DRUGS (2)
  1. CHANTIX [Suspect]
     Indication: SMOKING CESSATION THERAPY
     Route: 048
     Dates: start: 20070721, end: 20070826
  2. ATENOLOL [Concomitant]

REACTIONS (1)
  - HEADACHE [None]
